FAERS Safety Report 13646653 (Version 1)
Quarter: 2017Q2

REPORT INFORMATION
  Report Type: Spontaneous
  Country: US (occurrence: US)
  Receive Date: 20170612
  Receipt Date: 20170612
  Transmission Date: 20170830
  Serious: Yes (Death)
  Sender: FDA-Public Use
  Company Number: None

PATIENT
  Age: 55 Year
  Sex: Male

DRUGS (1)
  1. CYCLOPHOSPHAMIDE 50MG WEST-WARD PHARMACEUTICALS CORP [Suspect]
     Active Substance: CYCLOPHOSPHAMIDE
     Indication: PLASMA CELL MYELOMA
     Dosage: 700MG QWK PO
     Route: 048
     Dates: start: 20170519

REACTIONS (1)
  - Surgery [None]

NARRATIVE: CASE EVENT DATE: 20170522
